FAERS Safety Report 14232589 (Version 2)
Quarter: 2018Q1

REPORT INFORMATION
  Report Type: Spontaneous
  Country: CN (occurrence: CN)
  Receive Date: 20171128
  Receipt Date: 20180205
  Transmission Date: 20180508
  Serious: Yes (Death)
  Sender: FDA-Public Use
  Company Number: CN-NAPPMUNDI-GBR-2017-0050721

PATIENT
  Age: 75 Year

DRUGS (2)
  1. OXYCONTIN [Suspect]
     Active Substance: OXYCODONE HYDROCHLORIDE
     Indication: PAIN
     Dosage: 20 MG, Q12H
     Route: 054
     Dates: start: 20171023, end: 20171027
  2. OXYCONTIN [Suspect]
     Active Substance: OXYCODONE HYDROCHLORIDE
     Dosage: 20 MG, Q12H
     Route: 048
     Dates: start: 20171020, end: 20171023

REACTIONS (3)
  - Vomiting [Recovering/Resolving]
  - Off label use [Recovering/Resolving]
  - Death [Fatal]

NARRATIVE: CASE EVENT DATE: 20171020
